FAERS Safety Report 5042616-8 (Version None)
Quarter: 2006Q3

REPORT INFORMATION
  Report Type: 
  Country: None (occurrence: None)
  Receive Date: 20060705
  Receipt Date: 20060614
  Transmission Date: 20061208
  Serious: Yes (Other)
  Sender: FDA-Public Use
  Company Number: PHEH2006US07771

PATIENT
  Age: 69 Year
  Sex: Male

DRUGS (2)
  1. ZOMETA [Suspect]
     Indication: MULTIPLE MYELOMA
     Dosage: MONTHLY
     Dates: start: 20040801, end: 20060301
  2. DECADRON [Concomitant]
     Indication: MULTIPLE MYELOMA
     Dosage: 200 MG X 4 DAYS EVERY MONTH
     Dates: start: 20040801

REACTIONS (10)
  - BONE DISORDER [None]
  - IMPAIRED HEALING [None]
  - MUCOSAL INFLAMMATION [None]
  - OSTEOMYELITIS [None]
  - OSTEONECROSIS [None]
  - PAIN [None]
  - PRIMARY SEQUESTRUM [None]
  - TOOTH EXTRACTION [None]
  - TOOTH INFECTION [None]
  - WOUND DEBRIDEMENT [None]
